FAERS Safety Report 17849562 (Version 4)
Quarter: 2020Q3

REPORT INFORMATION
  Report Type: Spontaneous
  Country: FR (occurrence: FR)
  Receive Date: 20200602
  Receipt Date: 20200917
  Transmission Date: 20201103
  Serious: Yes (Life-Threatening, Hospitalization)
  Sender: FDA-Public Use
  Company Number: NVSC2020FR150359

PATIENT
  Age: 51 Year
  Sex: Male

DRUGS (8)
  1. AMLODIPINE [Suspect]
     Active Substance: AMLODIPINE BESYLATE
     Dosage: 450 MG (45 TABLETS OF 10MG)
     Route: 048
  2. BISOPROLOL [Suspect]
     Active Substance: BISOPROLOL
     Dosage: 160 MG (16 TABLETS OF 10MG)
     Route: 048
  3. RAMIPRIL. [Suspect]
     Active Substance: RAMIPRIL
     Indication: HYPERTENSION
     Dosage: 10 MG, QD
     Route: 048
  4. BISOPROLOL [Suspect]
     Active Substance: BISOPROLOL
     Indication: HYPERTENSION
     Dosage: 20 MG, QD
     Route: 065
  5. RAMIPRIL. [Suspect]
     Active Substance: RAMIPRIL
     Dosage: 150 MG (15 TABLETS OF 10MG)
     Route: 048
  6. ALCOHOL. [Suspect]
     Active Substance: ALCOHOL
     Indication: PRODUCT USED FOR UNKNOWN INDICATION
     Dosage: UNK (5 BEERS)
     Route: 065
  7. AMLODIPINE [Suspect]
     Active Substance: AMLODIPINE BESYLATE
     Indication: HYPERTENSION
     Dosage: 10 MG, QD
     Route: 048
  8. BISOPROLOL [Suspect]
     Active Substance: BISOPROLOL
     Dosage: 2 DF, QD
     Route: 048

REACTIONS (8)
  - Renal failure [Unknown]
  - Sinus bradycardia [Recovered/Resolved]
  - Intentional product misuse [Recovered/Resolved]
  - Shock [Recovered/Resolved]
  - Pneumonia aspiration [Recovering/Resolving]
  - Intentional overdose [Recovered/Resolved]
  - Hypotension [Unknown]
  - Toxicity to various agents [Recovered/Resolved]
